FAERS Safety Report 12912382 (Version 1)
Quarter: 2016Q4

REPORT INFORMATION
  Report Type: Spontaneous
  Country: US (occurrence: US)
  Receive Date: 20161104
  Receipt Date: 20161104
  Transmission Date: 20170207
  Serious: Yes (Other)
  Sender: FDA-Public Use
  Company Number: US-JNJFOC-20161026957

PATIENT
  Sex: Female
  Weight: 100.25 kg

DRUGS (3)
  1. ALLEGRA [Concomitant]
     Active Substance: FEXOFENADINE HYDROCHLORIDE
     Indication: MULTIPLE ALLERGIES
     Route: 065
     Dates: start: 2016
  2. RISPERDAL [Suspect]
     Active Substance: RISPERIDONE
     Indication: PSYCHOTIC DISORDER
     Route: 048
     Dates: start: 1991
  3. IBUPROFEN. [Concomitant]
     Active Substance: IBUPROFEN
     Indication: PAIN
     Route: 065

REACTIONS (10)
  - Pyrexia [Unknown]
  - Gastrooesophageal reflux disease [Unknown]
  - Intentional self-injury [Unknown]
  - Abdominal discomfort [Unknown]
  - Weight decreased [Recovered/Resolved]
  - Gastrointestinal disorder [Unknown]
  - Malaise [Unknown]
  - Gait disturbance [Recovered/Resolved]
  - Schizophrenia [Unknown]
  - Dyspepsia [Unknown]

NARRATIVE: CASE EVENT DATE: 2000
